FAERS Safety Report 4638312-9 (Version None)
Quarter: 2005Q2

REPORT INFORMATION
  Report Type: 
  Country: None (occurrence: None)
  Receive Date: 20050415
  Receipt Date: 20050405
  Transmission Date: 20051028
  Serious: Yes (Other)
  Sender: FDA-Public Use
  Company Number: 2005021745

PATIENT
  Age: 77 Year
  Sex: Male
  Weight: 73 kg

DRUGS (6)
  1. ZYVOX [Suspect]
     Indication: STAPHYLOCOCCAL INFECTION
     Dates: start: 20050104, end: 20050120
  2. PANTOPRAZOLE (PANTOPRAZOLE) [Suspect]
     Indication: PROPHYLAXIS
     Dosage: 40 MG  (40 MG, DAILY INTERVAL: EVERY DAY), INTRAVENOUS
     Route: 042
     Dates: start: 20050120, end: 20050127
  3. LANSOPRAZOLE [Suspect]
     Indication: PROPHYLAXIS
     Dosage: 30 MG (30 MG, DAILY INTERVAL:  EVERY DAY), ORAL
     Route: 048
     Dates: start: 20050127, end: 20050201
  4. PIP/TAZO (PIPERACILLIN SODIUM, TAZOBACTAM SODIUM) [Concomitant]
  5. AMIODARONE HCL [Concomitant]
  6. FLUCLOXACILLIN (FLUCLOXACILLIN) [Concomitant]

REACTIONS (4)
  - ALANINE AMINOTRANSFERASE INCREASED [None]
  - BLOOD ALKALINE PHOSPHATASE INCREASED [None]
  - BLOOD BILIRUBIN INCREASED [None]
  - RENAL FAILURE ACUTE [None]
